FAERS Safety Report 8590566-2 (Version None)
Quarter: 2012Q3

REPORT INFORMATION
  Report Type: 
  Country: None (occurrence: None)
  Receive Date: 20120813
  Receipt Date: 20120802
  Transmission Date: 20120928
  Serious: Yes (Hospitalization, Disabling, Other)
  Sender: FDA-Public Use
  Company Number: US-009507513-1203USA03388

PATIENT

DRUGS (3)
  1. FOSAMAX [Suspect]
     Dosage: 70 MG, UNK
     Route: 048
     Dates: start: 20040503, end: 20080801
  2. ALENDRONATE SODIUM [Suspect]
     Indication: OSTEOPENIA
     Dosage: 70 MG, UNK
     Route: 048
     Dates: start: 20080930, end: 20090901
  3. SYNTHROID [Concomitant]
     Indication: HYPOTHYROIDISM
     Dosage: UNK
     Dates: start: 19950101

REACTIONS (38)
  - VOMITING [None]
  - SINUS DISORDER [None]
  - HYPOGLYCAEMIA [None]
  - SINUS BRADYCARDIA [None]
  - POLYNEUROPATHY [None]
  - URINARY TRACT INFECTION [None]
  - PERIODONTAL DISEASE [None]
  - DIVERTICULUM [None]
  - LARYNGEAL DISORDER [None]
  - HYPOPHAGIA [None]
  - FISTULA DISCHARGE [None]
  - ORAL INFECTION [None]
  - EAR INFECTION [None]
  - VITAMIN D DEFICIENCY [None]
  - TOOTH FRACTURE [None]
  - INSOMNIA [None]
  - JAW DISORDER [None]
  - TONSILLECTOMY [None]
  - OSTEOMYELITIS [None]
  - RECTAL POLYP [None]
  - TRISMUS [None]
  - LYMPHADENECTOMY [None]
  - DIARRHOEA [None]
  - POSTOPERATIVE WOUND INFECTION [None]
  - OSTEONECROSIS OF JAW [None]
  - HYPERCHOLESTEROLAEMIA [None]
  - IMPAIRED HEALING [None]
  - MYOCARDIAL INFARCTION [None]
  - ANAEMIA [None]
  - NAUSEA [None]
  - BLADDER DILATATION [None]
  - TOOTHACHE [None]
  - TOOTH DISORDER [None]
  - HAEMORRHOIDS [None]
  - HYPERLIPIDAEMIA [None]
  - TYPE 2 DIABETES MELLITUS [None]
  - DRUG HYPERSENSITIVITY [None]
  - CLOSTRIDIUM DIFFICILE COLITIS [None]
